FAERS Safety Report 5017292-0 (Version None)
Quarter: 2006Q2

REPORT INFORMATION
  Report Type: 
  Country: None (occurrence: None)
  Receive Date: 20060602
  Receipt Date: 20060526
  Transmission Date: 20061013
  Serious: Yes (Other)
  Sender: FDA-Public Use
  Company Number: US-MERCK-0605USA05031

PATIENT
  Age: 32 Year
  Sex: Female

DRUGS (4)
  1. NEULASTA [Suspect]
     Route: 058
  2. DECADRON [Suspect]
     Indication: PREMEDICATION
     Route: 048
  3. DOXORUBICIN [Suspect]
     Indication: CHEMOTHERAPY
     Route: 065
  4. CYCLOPHOSPHAMIDE [Suspect]
     Indication: CHEMOTHERAPY
     Route: 065

REACTIONS (2)
  - NEUTROPENIA [None]
  - PYREXIA [None]
